FAERS Safety Report 6919328-6 (Version None)
Quarter: 2010Q3

REPORT INFORMATION
  Report Type: 
  Country: None (occurrence: None)
  Receive Date: 20100811
  Receipt Date: 20100804
  Transmission Date: 20110219
  Serious: Yes (Hospitalization)
  Sender: FDA-Public Use
  Company Number: A0874701A

PATIENT
  Age: 30 Year
  Sex: Female
  Weight: 49.1 kg

DRUGS (4)
  1. LAMOTRIGINE [Suspect]
     Indication: BIPOLAR DISORDER
     Dosage: 50MG IN THE MORNING
     Route: 048
     Dates: start: 20100703
  2. SEROQUEL [Suspect]
     Indication: BIPOLAR DISORDER
     Dosage: 300MG IN THE MORNING
     Route: 048
     Dates: start: 20100702, end: 20100717
  3. BLINDED TRIAL MEDICATION [Concomitant]
     Route: 048
     Dates: start: 20100625, end: 20100701
  4. ALBUTEROL [Concomitant]
     Indication: ASTHMA
     Dosage: 2PUFF AS REQUIRED
     Route: 055
     Dates: start: 19940101

REACTIONS (1)
  - MANIA [None]
